FAERS Safety Report 12198666 (Version 1)
Quarter: 2016Q1

REPORT INFORMATION
  Report Type: Spontaneous
  Country: US (occurrence: None)
  Receive Date: 20160321
  Receipt Date: 20160321
  Transmission Date: 20160526
  Serious: Yes (Disabling)
  Sender: FDA-Public Use
  Company Number: None

PATIENT
  Age: 52 Year
  Sex: Female
  Weight: 65.32 kg

DRUGS (2)
  1. PROPARACAINE ? NOT POSITIVE BUT MAYBE ALCON [Suspect]
     Active Substance: PROPARACAINE
     Indication: OPHTHALMOLOGICAL EXAMINATION
     Route: 031
  2. ONE A DAY MULTI-VITAMIN WITH CALCIUM FOR WOMEN [Concomitant]

REACTIONS (6)
  - Ocular hyperaemia [None]
  - Dry eye [None]
  - Foreign body sensation in eyes [None]
  - Sleep disorder due to general medical condition, insomnia type [None]
  - Photophobia [None]
  - Eye pruritus [None]

NARRATIVE: CASE EVENT DATE: 20151123
